FAERS Safety Report 8513810-6 (Version None)
Quarter: 2012Q3

REPORT INFORMATION
  Report Type: 
  Country: None (occurrence: None)
  Receive Date: 20120717
  Receipt Date: 20120711
  Transmission Date: 20120928
  Serious: Yes (Other)
  Sender: FDA-Public Use
  Company Number: DE-US-EMD SERONO, INC.-7140303

PATIENT
  Age: 48 Year
  Sex: Female

DRUGS (2)
  1. REBIF [Suspect]
     Route: 058
     Dates: start: 20100101
  2. REBIF [Suspect]
     Indication: MULTIPLE SCLEROSIS
     Route: 058
     Dates: start: 20030101

REACTIONS (11)
  - DYSPNOEA [None]
  - SENSORY DISTURBANCE [None]
  - ORAL FUNGAL INFECTION [None]
  - BALANCE DISORDER [None]
  - DISTURBANCE IN ATTENTION [None]
  - GASTROINTESTINAL FUNGAL INFECTION [None]
  - WEIGHT INCREASED [None]
  - FATIGUE [None]
  - INSOMNIA [None]
  - INJECTION SITE INDURATION [None]
  - OPTIC NEURITIS [None]
